FAERS Safety Report 19891574 (Version 2)
Quarter: 2021Q4

REPORT INFORMATION
  Report Type: Report from Study
  Country: US (occurrence: US)
  Receive Date: 20210928
  Receipt Date: 20211101
  Transmission Date: 20220303
  Serious: Yes (Death, Other)
  Sender: FDA-Public Use
  Company Number: US-TASMAN PHARMA, INC.-2021TSM00256

PATIENT
  Age: 63 Year
  Sex: Male

DRUGS (5)
  1. CLOZAPINE [Suspect]
     Active Substance: CLOZAPINE
  2. KENALOG [Concomitant]
     Active Substance: TRIAMCINOLONE ACETONIDE
     Dosage: APPLY TO RASH, 2X/DAY IN BETWEEN TREATMENT
  3. PERMETHRIN [Concomitant]
     Active Substance: PERMETHRIN
     Dosage: APPLY FROM EAR LOBES TO TOES. LEAVE ON FOR 12 HOURS AND WASH OFF, REPEAT IN 1 WEEK
  4. IVERMECTIN [Concomitant]
     Active Substance: IVERMECTIN
  5. CALCIFEROL [Concomitant]
     Dosage: 50000 IU, 1X/WEEK
     Route: 048

REACTIONS (9)
  - Death [Fatal]
  - Arteriosclerosis coronary artery [Unknown]
  - Vascular dementia [Unknown]
  - Neutrophil count increased [Recovered/Resolved]
  - Behaviour disorder [Unknown]
  - Gastrooesophageal reflux disease [Unknown]
  - Prostatomegaly [Unknown]
  - Post-traumatic stress disorder [Unknown]
  - Fall [Unknown]

NARRATIVE: CASE EVENT DATE: 20181226
